FAERS Safety Report 7961203-2 (Version None)
Quarter: 2011Q4

REPORT INFORMATION
  Report Type: 
  Country: None (occurrence: None)
  Receive Date: 20111207
  Receipt Date: 20111128
  Transmission Date: 20120403
  Serious: Yes (Other)
  Sender: FDA-Public Use
  Company Number: JP-BRISTOL-MYERS SQUIBB COMPANY-16272163

PATIENT
  Age: 83 Year
  Sex: Female

DRUGS (3)
  1. LIMAPROST [Suspect]
  2. CILOSTAZOL [Suspect]
  3. WARFARIN SODIUM [Suspect]

REACTIONS (2)
  - HAEMORRHAGE [None]
  - POST PROCEDURAL HAEMORRHAGE [None]
